FAERS Safety Report 9696671 (Version 2)
Quarter: 2014Q4

REPORT INFORMATION
  Report Type: Spontaneous
  Country: US (occurrence: None)
  Receive Date: 20131115
  Receipt Date: 20141222
  Transmission Date: 20150529
  Serious: Yes (Life-Threatening, Hospitalization)
  Sender: FDA-Public Use
  Company Number: 1713747-2013-99975

PATIENT
  Age: 47 Year
  Sex: Female

DRUGS (8)
  1. BENTYL [Concomitant]
     Active Substance: DICYCLOMINE HYDROCHLORIDE
  2. CABATROL [Concomitant]
  3. INSULIN REGULAR INJECTION THROUGH INSULIN PUMP [Concomitant]
  4. SIMVASTIN [Concomitant]
     Active Substance: SIMVASTATIN
  5. DELFLEX WITH DEXTROSE 1.5% LOW MAGNESIUM LOW CALCIUM [Suspect]
     Active Substance: CALCIUM CHLORIDE\DEXTROSE MONOHYDRATE\MAGNESIUM CHLORIDE\SODIUM CHLORIDE\SODIUM LACTATE
     Indication: CHRONIC KIDNEY DISEASE
  6. RAMLPRIL [Concomitant]
  7. MIDODRINE [Concomitant]
     Active Substance: MIDODRINE
  8. DELFLEX WITH DEXTROSE 1.5% LOW MAGNESIUM LOW CALCIUM [Suspect]
     Active Substance: CALCIUM CHLORIDE\DEXTROSE MONOHYDRATE\MAGNESIUM CHLORIDE\SODIUM CHLORIDE\SODIUM LACTATE
     Indication: PERITONEAL DIALYSIS

REACTIONS (10)
  - Seizure [None]
  - Hypertension [None]
  - Blood glucose increased [None]
  - Blood glucose decreased [None]
  - Anticonvulsant drug level decreased [None]
  - Drug withdrawal convulsions [None]
  - Road traffic accident [None]
  - Vomiting [None]
  - Abdominal pain upper [None]
  - Hypoglycaemia [None]

NARRATIVE: CASE EVENT DATE: 20131019
